FAERS Safety Report 12681088 (Version 1)
Quarter: 2016Q3

REPORT INFORMATION
  Report Type: Report from Study
  Country: CA (occurrence: CA)
  Receive Date: 20160824
  Receipt Date: 20160824
  Transmission Date: 20161109
  Serious: Yes (Other)
  Sender: FDA-Public Use
  Company Number: CA-JNJFOC-20160815892

PATIENT
  Sex: Female
  Weight: 94.6 kg

DRUGS (1)
  1. REMICADE [Suspect]
     Active Substance: INFLIXIMAB
     Indication: CROHN^S DISEASE
     Route: 042
     Dates: start: 20150527

REACTIONS (2)
  - Intestinal stenosis [Not Recovered/Not Resolved]
  - Scar [Not Recovered/Not Resolved]
